FAERS Safety Report 11334958 (Version 8)
Quarter: 2015Q3

REPORT INFORMATION
  Report Type: Spontaneous
  Country: IR (occurrence: IR)
  Receive Date: 20150804
  Receipt Date: 20150924
  Transmission Date: 20151125
  Serious: Yes (Death, Other)
  Sender: FDA-Public Use
  Company Number: IR-MERCK-1508IRN000840

PATIENT
  Sex: Male

DRUGS (1)
  1. TEMODAL [Suspect]
     Active Substance: TEMOZOLOMIDE
     Dosage: 100 MG, QD
     Route: 048

REACTIONS (1)
  - Cardiac arrest [Fatal]
